FAERS Safety Report 8155014-5 (Version None)
Quarter: 2012Q1

REPORT INFORMATION
  Report Type: 
  Country: None (occurrence: None)
  Receive Date: 20120221
  Receipt Date: 20120217
  Transmission Date: 20120608
  Serious: Yes (Death, Hospitalization, Other)
  Sender: FDA-Public Use
  Company Number: PHHY2012BR013792

PATIENT
  Age: 83 Year
  Sex: Female

DRUGS (3)
  1. TEGRETOL-XR [Suspect]
     Indication: EPILEPSY
     Dosage: 1 DF, DAILY
     Route: 048
  2. PHENOBARBITAL TAB [Concomitant]
     Indication: SOMNOLENCE
     Dosage: 1 DF, UNK
  3. FRISIUM [Concomitant]
     Indication: EPILEPSY
     Dosage: 1 DF, UNK

REACTIONS (4)
  - ARRHYTHMIA [None]
  - HYPERTENSION [None]
  - FEMUR FRACTURE [None]
  - RENAL FAILURE [None]
